FAERS Safety Report 16092390 (Version 5)
Quarter: 2020Q3

REPORT INFORMATION
  Report Type: Spontaneous
  Country: JP (occurrence: JP)
  Receive Date: 20190319
  Receipt Date: 20200701
  Transmission Date: 20201102
  Serious: Yes (Death, Hospitalization, Other)
  Sender: FDA-Public Use
  Company Number: JP-009507513-1903JPN001393J

PATIENT
  Age: 73 Year
  Sex: Male
  Weight: 56 kg

DRUGS (9)
  1. DECADRON [Concomitant]
     Active Substance: DEXAMETHASONE
     Indication: PROPHYLAXIS
     Dosage: 8 MILLIGRAM, QD
     Route: 048
     Dates: start: 20190222, end: 20190224
  2. CARBOPLATIN. [Suspect]
     Active Substance: CARBOPLATIN
     Indication: NON-SMALL CELL LUNG CANCER
     Dosage: 366.52 MILLIGRAM, Q3W
     Route: 041
     Dates: start: 20190221, end: 20190221
  3. ABRAXANE [Suspect]
     Active Substance: PACLITAXEL
     Indication: NON-SMALL CELL LUNG CANCER
     Dosage: 156.4 MILLIGRAM, QW
     Route: 041
     Dates: start: 20190221, end: 20190221
  4. E KEPPRA [Concomitant]
     Active Substance: LEVETIRACETAM
     Indication: NON-SMALL CELL LUNG CANCER
     Dosage: 500 MILLIGRAM, BID
     Route: 048
     Dates: start: 20190110, end: 20190226
  5. NEXIUM [Concomitant]
     Active Substance: ESOMEPRAZOLE MAGNESIUM
     Indication: PROPHYLAXIS
     Dosage: 20 MILLIGRAM, QD
     Route: 048
     Dates: start: 20190110, end: 20190226
  6. BETAMETHASONE. [Concomitant]
     Active Substance: BETAMETHASONE
     Indication: NON-SMALL CELL LUNG CANCER
     Dosage: 1 MILLIGRAM, BID
     Route: 048
     Dates: start: 20190110, end: 20190226
  7. SENNA [Concomitant]
     Active Substance: SENNA LEAF\SENNOSIDES\SENNOSIDES A AND B
     Dosage: 160 MILLIGRAM, QD
     Route: 048
     Dates: start: 20190222, end: 20190226
  8. KEYTRUDA [Suspect]
     Active Substance: PEMBROLIZUMAB
     Indication: NON-SMALL CELL LUNG CANCER
     Dosage: 200 MILLIGRAM, Q3W
     Route: 041
     Dates: start: 20190221, end: 20190221
  9. MAGMITT [Concomitant]
     Active Substance: MAGNESIUM OXIDE
     Dosage: 330 MILLIGRAM, TID
     Route: 048
     Dates: start: 20190124, end: 20190226

REACTIONS (3)
  - Multiple organ dysfunction syndrome [Unknown]
  - Colitis [Unknown]
  - Sepsis [Fatal]

NARRATIVE: CASE EVENT DATE: 2019
